FAERS Safety Report 24340724 (Version 1)
Quarter: 2024Q3

REPORT INFORMATION
  Report Type: Spontaneous
  Country: US (occurrence: US)
  Receive Date: 20240919
  Receipt Date: 20240919
  Transmission Date: 20241017
  Serious: Yes (Other)
  Sender: PFIZER
  Company Number: US-PFIZER INC-PV202400121862

PATIENT
  Sex: Male

DRUGS (1)
  1. LINEZOLID [Suspect]
     Active Substance: LINEZOLID
     Indication: Inflammation
     Dosage: UNK
     Dates: end: 2024

REACTIONS (7)
  - Neuropathy peripheral [Unknown]
  - Intestinal obstruction [Unknown]
  - Anaemia [Unknown]
  - Abdominal discomfort [Unknown]
  - Abnormal faeces [Unknown]
  - Drug ineffective for unapproved indication [Unknown]
  - Off label use [Unknown]
